FAERS Safety Report 17352337 (Version 1)
Quarter: 2020Q1

REPORT INFORMATION
  Report Type: Spontaneous
  Country: US (occurrence: US)
  Receive Date: 20200130
  Receipt Date: 20200130
  Transmission Date: 20200409
  Serious: No
  Sender: FDA-Public Use
  Company Number: US-BRISTOL-MYERS SQUIBB COMPANY-BMS-2020-003722

PATIENT
  Sex: Female
  Weight: 59.87 kg

DRUGS (5)
  1. IBRANCE [Concomitant]
     Active Substance: PALBOCICLIB
     Indication: BREAST CANCER
     Dosage: 125 MILLIGRAM, ONCE A DAY 21 DAYS 7 DAYS OFF
     Route: 065
     Dates: start: 2017
  2. LETROZOLE. [Concomitant]
     Active Substance: LETROZOLE
     Indication: HORMONE REPLACEMENT THERAPY
     Dosage: 2.5 MILLIGRAM, QD
     Route: 065
  3. PRAVASTATIN SODIUM. [Suspect]
     Active Substance: PRAVASTATIN SODIUM
     Indication: BLOOD CHOLESTEROL
     Dosage: UNK
     Route: 065
     Dates: end: 201910
  4. IBRANCE [Concomitant]
     Active Substance: PALBOCICLIB
     Indication: PRODUCT USED FOR UNKNOWN INDICATION
     Dosage: 75 MILLIGRAM, ONCE A DAY 21 DAYS 7 DAYS OFF
     Route: 065
     Dates: end: 20191218
  5. IBRANCE [Concomitant]
     Active Substance: PALBOCICLIB
     Indication: PRODUCT USED FOR UNKNOWN INDICATION
     Dosage: 75 MILLIGRAM, ONCE A DAY 21 DAYS 7 DAYS OFF
     Route: 065
     Dates: start: 20191228

REACTIONS (1)
  - Dyspepsia [Unknown]
